FAERS Safety Report 16331016 (Version 1)
Quarter: 2019Q2

REPORT INFORMATION
  Report Type: Spontaneous
  Country: US (occurrence: US)
  Receive Date: 20190520
  Receipt Date: 20190520
  Transmission Date: 20190711
  Serious: No
  Sender: FDA-Public Use
  Company Number: US-BAYER-2019-098346

PATIENT
  Age: 88 Year
  Sex: Female
  Weight: 85 kg

DRUGS (7)
  1. VITAMIN D3 [Concomitant]
     Active Substance: CHOLECALCIFEROL
  2. SEVELAMER [Concomitant]
     Active Substance: SEVELAMER
  3. VELTASSA [Concomitant]
     Active Substance: PATIROMER
  4. RENAL VITAMINS [Concomitant]
     Active Substance: VITAMINS
  5. WARFARIN [Concomitant]
     Active Substance: WARFARIN
  6. GABAPENTIN. [Concomitant]
     Active Substance: GABAPENTIN
  7. MIRALAX [Suspect]
     Active Substance: POLYETHYLENE GLYCOL 3350
     Indication: CONSTIPATION
     Dosage: 0.5 DF, QD
     Route: 048

REACTIONS (2)
  - Product use in unapproved indication [Unknown]
  - Incorrect dose administered [Unknown]
